FAERS Safety Report 7892722-5 (Version None)
Quarter: 2011Q4

REPORT INFORMATION
  Report Type: 
  Country: None (occurrence: None)
  Receive Date: 20111104
  Receipt Date: 20111102
  Transmission Date: 20120403
  Serious: No
  Sender: FDA-Public Use
  Company Number: US-BAYER-2011-106733

PATIENT

DRUGS (1)
  1. GADAVIST [Suspect]

REACTIONS (2)
  - VOMITING [None]
  - NAUSEA [None]
